FAERS Safety Report 4751921-1 (Version None)
Quarter: 2005Q3

REPORT INFORMATION
  Report Type: 
  Country: None (occurrence: None)
  Receive Date: 20050824
  Receipt Date: 20050713
  Transmission Date: 20060218
  Serious: Yes (Hospitalization, Disabling)
  Sender: FDA-Public Use
  Company Number: US-MERCK-0507USA01828

PATIENT
  Age: 56 Year
  Sex: Male
  Weight: 123 kg

DRUGS (2)
  1. VIOXX [Suspect]
     Indication: SHOULDER PAIN
     Route: 048
     Dates: start: 20030101, end: 20030701
  2. LOTENSIN [Concomitant]
     Route: 048

REACTIONS (2)
  - MYOCARDIAL INFARCTION [None]
  - SYNCOPE [None]
